FAERS Safety Report 14636014 (Version 1)
Quarter: 2018Q1

REPORT INFORMATION
  Report Type: Spontaneous
  Country: FR (occurrence: FR)
  Receive Date: 20180314
  Receipt Date: 20180314
  Transmission Date: 20180509
  Serious: Yes (Hospitalization)
  Sender: FDA-Public Use
  Company Number: FR-SA-2018SA065018

PATIENT
  Age: 82 Year
  Sex: Female

DRUGS (1)
  1. LOVENOX [Suspect]
     Active Substance: ENOXAPARIN SODIUM
     Indication: CARDIAC VALVE PROSTHESIS USER
     Route: 058
     Dates: start: 20180213

REACTIONS (2)
  - Intra-abdominal haemorrhage [Recovered/Resolved with Sequelae]
  - Therapeutic embolisation [Unknown]

NARRATIVE: CASE EVENT DATE: 20180220
